FAERS Safety Report 16986741 (Version 1)
Quarter: 2019Q4

REPORT INFORMATION
  Report Type: Spontaneous
  Country: US (occurrence: US)
  Receive Date: 20190918
  Receipt Date: 20190918
  Transmission Date: 20200122
  Serious: Yes (Hospitalization)
  Sender: FDA-Public Use
  Company Number: None

PATIENT
  Age: 69 Year
  Sex: Male
  Weight: 58.8 kg

DRUGS (3)
  1. LENALIDOMIDE (CC-5013) [Suspect]
     Active Substance: LENALIDOMIDE
     Dates: end: 20161121
  2. DEXAMETHASONE. [Suspect]
     Active Substance: DEXAMETHASONE
     Dates: end: 20161119
  3. VELCADE [Suspect]
     Active Substance: BORTEZOMIB
     Dates: end: 20161118

REACTIONS (6)
  - Musculoskeletal discomfort [None]
  - Asthenia [None]
  - Insomnia [None]
  - Back pain [None]
  - Pain [None]
  - Inadequate analgesia [None]

NARRATIVE: CASE EVENT DATE: 20161120
